FAERS Safety Report 9209539 (Version 1)
Quarter: 2013Q1

REPORT INFORMATION
  Report Type: Spontaneous
  Country: US (occurrence: None)
  Receive Date: 20120816
  Receipt Date: 20120816
  Transmission Date: 20140127
  Serious: Yes (Hospitalization)
  Sender: FDA-Public Use
  Company Number: SP05797

PATIENT
  Age: 69 Year
  Sex: Female
  Weight: 69.85 kg

DRUGS (1)
  1. MOVIPREP [Suspect]
     Indication: BOWEL PREPARATION
     Route: 048
     Dates: start: 20120524, end: 20120524

REACTIONS (3)
  - Fatigue [None]
  - Heart rate increased [None]
  - Headache [None]
